FAERS Safety Report 9169087 (Version 1)
Quarter: 2013Q1

REPORT INFORMATION
  Report Type: Spontaneous
  Country: US (occurrence: US)
  Receive Date: 20130318
  Receipt Date: 20130318
  Transmission Date: 20140127
  Serious: Yes (Death)
  Sender: FDA-Public Use
  Company Number: US-GLAXOSMITHKLINE-A1015487A

PATIENT
  Age: 67 Year
  Sex: Male

DRUGS (6)
  1. ARIXTRA [Suspect]
     Indication: DEEP VEIN THROMBOSIS
     Dosage: 7.5MG PER DAY
     Route: 058
     Dates: start: 20121024
  2. THYROID [Concomitant]
  3. K-TAB [Concomitant]
  4. LASIX [Concomitant]
  5. TESTOSTERONE [Concomitant]
  6. LISINOPRIL [Concomitant]

REACTIONS (1)
  - Road traffic accident [Fatal]
